FAERS Safety Report 4843440-9 (Version None)
Quarter: 2005Q4

REPORT INFORMATION
  Report Type: 
  Country: None (occurrence: None)
  Receive Date: 20051027
  Receipt Date: 20050629
  Transmission Date: 20060501
  Serious: Yes (Other)
  Sender: FDA-Public Use
  Company Number: HQWYE876430JUN05

PATIENT
  Age: 53 Year
  Sex: Female
  Weight: 55.39 kg

DRUGS (1)
  1. PREMARIN [Suspect]
     Indication: HORMONE REPLACEMENT THERAPY
     Dosage: 1.25 MG 1X PER 1 DAY
     Dates: start: 19820101, end: 20001213

REACTIONS (2)
  - BREAST CANCER [None]
  - WEIGHT INCREASED [None]
